FAERS Safety Report 4983579-0 (Version None)
Quarter: 2006Q2

REPORT INFORMATION
  Report Type: 
  Country: None (occurrence: None)
  Receive Date: 20060426
  Receipt Date: 20060411
  Transmission Date: 20061013
  Serious: Yes (Hospitalization)
  Sender: FDA-Public Use
  Company Number: FRWYE549411APR06

PATIENT
  Age: 32 Year
  Sex: Female
  Weight: 69 kg

DRUGS (7)
  1. ENBREL [Suspect]
     Indication: PSORIASIS
     Route: 058
     Dates: start: 20051212, end: 20060101
  2. LAROXYL [Suspect]
     Indication: DYSTHYMIC DISORDER
     Dosage: 125 MG TOTAL DAILY
     Route: 048
     Dates: start: 20060124, end: 20060202
  3. EFFEXOR [Suspect]
     Dosage: 150 MG TOTAL DAILY
     Route: 048
     Dates: end: 20060101
  4. LIOTHYRONINE SODIUM [Concomitant]
     Indication: BASEDOW'S DISEASE
     Dosage: UNKNOWN
     Route: 048
     Dates: start: 20030101, end: 20060101
  5. CLOBETASOL PROPIONATE [Concomitant]
     Dosage: UNKNOWN
     Route: 061
     Dates: end: 20060101
  6. RIVOTRIL [Concomitant]
     Dosage: UNKNOWN
     Route: 048
     Dates: end: 20060101
  7. CARBIMAZOLE [Concomitant]
     Indication: BASEDOW'S DISEASE
     Dosage: UNKNOWN
     Route: 048
     Dates: start: 20030101

REACTIONS (2)
  - BASEDOW'S DISEASE [None]
  - CONDITION AGGRAVATED [None]
